FAERS Safety Report 8106634-5 (Version None)
Quarter: 2011Q4

REPORT INFORMATION
  Report Type: 
  Country: None (occurrence: None)
  Receive Date: 20111222
  Receipt Date: 20110906
  Transmission Date: 20120403
  Serious: Yes (Hospitalization)
  Sender: FDA-Public Use
  Company Number: UTC-009652

PATIENT
  Age: 53 Year
  Sex: Female
  Weight: 69.5 kg

DRUGS (5)
  1. TYVASO [Suspect]
     Indication: COR PULMONALE CHRONIC
     Dosage: 216 MCG (54 MCG,4 IN 1 D),INHALATION
     Route: 055
     Dates: start: 20091127
  2. TRACLEER [Concomitant]
  3. REVATIO [Concomitant]
  4. DIURETICS (DIURETICS) [Concomitant]
  5. OXYGEN (OXYGEN) [Concomitant]

REACTIONS (5)
  - THROMBOCYTOPENIA [None]
  - GASTRIC VARICES HAEMORRHAGE [None]
  - GASTROINTESTINAL HAEMORRHAGE [None]
  - ANAEMIA [None]
  - PORTAL HYPERTENSION [None]
